FAERS Safety Report 7951323-0 (Version None)
Quarter: 2011Q4

REPORT INFORMATION
  Report Type: 
  Country: None (occurrence: None)
  Receive Date: 20111201
  Receipt Date: 20111123
  Transmission Date: 20120403
  Serious: Yes (Other)
  Sender: FDA-Public Use
  Company Number: BR-ASTELLAS-2011US007948

PATIENT
  Age: 1 Month
  Sex: Female

DRUGS (1)
  1. MYCAMINE [Suspect]
     Indication: FUNGAL INFECTION
     Dosage: 50 MG, UNKNOWN/D
     Route: 042

REACTIONS (3)
  - OFF LABEL USE [None]
  - NEONATAL CHOLESTASIS [None]
  - INCORRECT DOSE ADMINISTERED [None]
